FAERS Safety Report 20217014 (Version 1)
Quarter: 2021Q4

REPORT INFORMATION
  Report Type: Spontaneous
  Country: AT (occurrence: AT)
  Receive Date: 20211222
  Receipt Date: 20211222
  Transmission Date: 20220303
  Serious: Yes (Other)
  Sender: FDA-Public Use
  Company Number: AT-002147023-NVSC2021AT151316

PATIENT
  Sex: Male
  Weight: 125 kg

DRUGS (5)
  1. VALSARTAN [Suspect]
     Active Substance: VALSARTAN
     Indication: Hypertension
     Dosage: 160 MILLIGRAM, QD (160 MG, QD, 1/2)
     Route: 048
     Dates: start: 20130719, end: 20170907
  2. HYDROCHLOROTHIAZIDE\VALSARTAN [Suspect]
     Active Substance: HYDROCHLOROTHIAZIDE\VALSARTAN
     Indication: Hypertension
     Dosage: 1 DOSAGE FORM, QD (1 DF, QD (160/25 MG))
     Route: 048
     Dates: start: 20130719, end: 20170907
  3. BISOPROLOL FUMARATE [Concomitant]
     Active Substance: BISOPROLOL FUMARATE
     Indication: Product used for unknown indication
     Dosage: 0.5 DOSAGE FORM, QD (0.5 DF, QD)
     Route: 065
  4. BISOPROLOL FUMARATE [Concomitant]
     Active Substance: BISOPROLOL FUMARATE
     Dosage: 1.5 DOSAGE FORM (1.5 DF)
     Route: 065
  5. ALDACTONE [Concomitant]
     Active Substance: SPIRONOLACTONE
     Indication: Product used for unknown indication
     Dosage: 0.5 DOSAGE FORM, QD (0.5 DF, QD)
     Route: 065

REACTIONS (54)
  - Congestive cardiomyopathy [Unknown]
  - Mitral valve incompetence [Unknown]
  - Aortic valve incompetence [Unknown]
  - Hypothyroidism [Unknown]
  - Tricuspid valve incompetence [Unknown]
  - Arrhythmia [Unknown]
  - Thyroid mass [Unknown]
  - Arteriosclerosis [Unknown]
  - Depression [Unknown]
  - Heart rate abnormal [Unknown]
  - Mean cell volume decreased [Unknown]
  - Neck pain [Unknown]
  - Benign neoplasm of thyroid gland [Unknown]
  - Blood iron decreased [Unknown]
  - Mental disorder [Unknown]
  - Bronchitis chronic [Unknown]
  - Neutrophil count decreased [Unknown]
  - Progesterone increased [Unknown]
  - Cardiomegaly [Unknown]
  - Arthritis [Unknown]
  - Lymphocyte count increased [Unknown]
  - Ill-defined disorder [Unknown]
  - Nasal septum disorder [Unknown]
  - Dysphonia [Unknown]
  - High density lipoprotein increased [Unknown]
  - Goitre [Unknown]
  - Arthralgia [Unknown]
  - Dyspnoea [Unknown]
  - Oedema peripheral [Unknown]
  - Blood testosterone increased [Unknown]
  - Asthma [Unknown]
  - Gastrooesophageal reflux disease [Unknown]
  - Diastolic dysfunction [Unknown]
  - C-reactive protein increased [Unknown]
  - Ventricular extrasystoles [Unknown]
  - Total cholesterol/HDL ratio increased [Unknown]
  - Chronic obstructive pulmonary disease [Unknown]
  - Bronchopulmonary disease [Unknown]
  - Body temperature decreased [Unknown]
  - Palpitations [Unknown]
  - Blood creatinine increased [Unknown]
  - Obesity [Unknown]
  - Arthropathy [Unknown]
  - Blood urea increased [Unknown]
  - Blood glucose increased [Unknown]
  - Gamma-glutamyltransferase increased [Unknown]
  - Fatigue [Unknown]
  - Supraventricular extrasystoles [Unknown]
  - Hypertension [Unknown]
  - Cough [Recovering/Resolving]
  - Hyperlipidaemia [Unknown]
  - Migraine [Unknown]
  - Rhinitis [Unknown]
  - Laryngeal discomfort [Unknown]

NARRATIVE: CASE EVENT DATE: 20200101
